FAERS Safety Report 5646371-X (Version None)
Quarter: 2008Q1

REPORT INFORMATION
  Report Type: 
  Country: None (occurrence: None)
  Receive Date: 20080303
  Receipt Date: 20080226
  Transmission Date: 20080703
  Serious: Yes (Other)
  Sender: FDA-Public Use
  Company Number: US-WYE-H02293508

PATIENT
  Sex: Female
  Weight: 70.82 kg

DRUGS (9)
  1. TORISEL [Suspect]
     Indication: RENAL CELL CARCINOMA
     Route: 042
     Dates: start: 20080109, end: 20080116
  2. KEPPRA [Interacting]
     Indication: CONVULSION
     Route: 065
  3. OXYCONTIN [Concomitant]
     Indication: PAIN
     Route: 065
  4. LIPITOR [Concomitant]
     Indication: HYPERCHOLESTEROLAEMIA
     Route: 065
  5. PAXIL CR [Concomitant]
     Route: 065
  6. LOPRESSOR [Concomitant]
     Indication: HYPERTENSION
     Route: 065
  7. PLAVIX [Concomitant]
     Route: 065
  8. DILANTIN [Interacting]
     Indication: CONVULSION
     Route: 065
  9. OXYCODONE HCL [Concomitant]
     Indication: PAIN
     Dosage: 15 MG EVERY 4 HOURS AS NEEDED
     Route: 065

REACTIONS (3)
  - ANTICONVULSANT DRUG LEVEL BELOW THERAPEUTIC [None]
  - CONVULSION [None]
  - DRUG INTERACTION [None]
